FAERS Safety Report 17154056 (Version 4)
Quarter: 2020Q3

REPORT INFORMATION
  Report Type: Spontaneous
  Country: DE (occurrence: DE)
  Receive Date: 20191213
  Receipt Date: 20200804
  Transmission Date: 20201102
  Serious: Yes (Hospitalization, Other)
  Sender: FDA-Public Use
  Company Number: DE-SAMSUNG BIOEPIS-SB-2019-37063

PATIENT
  Age: 39 Year
  Sex: Female
  Weight: 54 kg

DRUGS (7)
  1. PERTUZUMAB. [Suspect]
     Active Substance: PERTUZUMAB
     Dosage: INFUSION, SOLUTION
     Route: 042
     Dates: start: 20161214
  2. DOCETAXEL. [Suspect]
     Active Substance: DOCETAXEL
     Indication: HER2 POSITIVE BREAST CANCER
     Dosage: DATE OF LAST DOSE PRIOR TO SAE: 09/SEP/2016?DATE OF LAST DOSE PRIOR TO SAE ON 20/OCT/2016.
     Route: 042
     Dates: start: 20160527
  3. IBUPROFEN. [Concomitant]
     Active Substance: IBUPROFEN
     Indication: PAIN
     Dosage: DAILY DOSE: 600 MG MILLGRAM(S) EVERY DAYS
     Route: 048
     Dates: start: 20160630
  4. TRASTUZUMAB. [Suspect]
     Active Substance: TRASTUZUMAB
     Indication: HER2 POSITIVE BREAST CANCER
     Dosage: DATE OF LAST DOSE PRIOR TO SAE: 09/SEP/2016?DATE OF LAST DOSE PRIOR TO EVENT SECOND OCCURENCE OF ANE
     Route: 042
     Dates: start: 20160527
  5. NOVALGIN (METAMIZOLE SODIUM) [Concomitant]
     Active Substance: METAMIZOLE SODIUM
     Indication: PAIN
     Dosage: UNKNOWN
     Route: 048
  6. LONQUEX [Suspect]
     Active Substance: LIPEGFILGRASTIM
     Indication: BREAST CANCER
     Dosage: D2 DATE OF LAST DOSE PRIOR TO SAE ON 20/OCT/2016.
     Route: 058
     Dates: start: 20160617
  7. PERTUZUMAB. [Suspect]
     Active Substance: PERTUZUMAB
     Indication: HER2 POSITIVE BREAST CANCER
     Dosage: INFUSION, SOLUTION??DATE OF LAST DOSE PRIOR TO SAE: 09/SEP/2016?DATE OF LAST DOSE PRIOR TO EVENT SEC
     Route: 042
     Dates: start: 20160527

REACTIONS (5)
  - Post-traumatic pain [Not Recovered/Not Resolved]
  - Pain [Unknown]
  - Swelling [Unknown]
  - Diarrhoea [Recovered/Resolved]
  - Vascular device infection [Unknown]
